FAERS Safety Report 14572248 (Version 4)
Quarter: 2018Q2

REPORT INFORMATION
  Report Type: Spontaneous
  Country: US (occurrence: US)
  Receive Date: 20180226
  Receipt Date: 20180501
  Transmission Date: 20180711
  Serious: Yes (Other)
  Sender: FDA-Public Use
  Company Number: US-LEXICON PHARMACEUTICALS, INC-18-1606-00193

PATIENT
  Age: 58 Year
  Sex: Male
  Weight: 86.3 kg

DRUGS (10)
  1. LOMOTIL [Concomitant]
     Active Substance: ATROPINE SULFATE\DIPHENOXYLATE HYDROCHLORIDE
     Route: 048
     Dates: start: 20171212
  2. TELOTRISTAT ETHYL [Suspect]
     Active Substance: TELOTRISTAT ETHYL
     Indication: CARCINOID SYNDROME
     Route: 048
     Dates: start: 20180123, end: 20180213
  3. SANDOSTATIN / OCTREOTIDE [Concomitant]
     Route: 030
     Dates: end: 20170918
  4. NORVASC [Concomitant]
     Active Substance: AMLODIPINE BESYLATE
     Indication: HYPERTENSION
     Route: 048
     Dates: start: 20180216
  5. NIFEDIPINE. [Concomitant]
     Active Substance: NIFEDIPINE
     Dates: end: 2018
  6. TELOTRISTAT ETHYL [Suspect]
     Active Substance: TELOTRISTAT ETHYL
     Indication: CARCINOID TUMOUR
     Route: 048
     Dates: start: 20180217
  7. LABETOLOL [Concomitant]
     Active Substance: LABETALOL HYDROCHLORIDE
     Route: 048
  8. ZOCOR [Concomitant]
     Active Substance: SIMVASTATIN
     Route: 048
  9. LISINOPRIL. [Concomitant]
     Active Substance: LISINOPRIL
     Route: 048
     Dates: start: 20180323
  10. METFORMIN [Concomitant]
     Active Substance: METFORMIN HYDROCHLORIDE
     Route: 048

REACTIONS (15)
  - Dizziness [Unknown]
  - Influenza like illness [Recovering/Resolving]
  - Defaecation urgency [Unknown]
  - Bradycardia [Recovered/Resolved]
  - Hypertension [Not Recovered/Not Resolved]
  - Flushing [Not Recovered/Not Resolved]
  - Metastases to liver [Unknown]
  - Myalgia [Recovering/Resolving]
  - Heart rate decreased [Not Recovered/Not Resolved]
  - Cough [Unknown]
  - Nausea [Unknown]
  - Hepatic neoplasm [Unknown]
  - Rash [Not Recovered/Not Resolved]
  - Diarrhoea [Recovered/Resolved]
  - Fatigue [Recovering/Resolving]

NARRATIVE: CASE EVENT DATE: 20180213
